FAERS Safety Report 5643586-1 (Version None)
Quarter: 2008Q1

REPORT INFORMATION
  Report Type: 
  Country: None (occurrence: None)
  Receive Date: 20080228
  Receipt Date: 20080218
  Transmission Date: 20080703
  Serious: Yes (Other)
  Sender: FDA-Public Use
  Company Number: CA-PFIZER INC-2008016773

PATIENT
  Age: 47 Year
  Sex: Male

DRUGS (6)
  1. CHANTIX [Suspect]
     Route: 048
     Dates: start: 20080201, end: 20080215
  2. MONOCOR [Concomitant]
     Route: 048
  3. LIPITOR [Concomitant]
     Route: 048
  4. PLAVIX [Concomitant]
     Route: 048
  5. ATACAND [Concomitant]
     Route: 048
  6. RIVASA [Concomitant]
     Route: 048

REACTIONS (1)
  - ERYTHEMA INFECTIOSUM [None]
